FAERS Safety Report 22225990 (Version 2)
Quarter: 2023Q2

REPORT INFORMATION
  Report Type: Report from Study
  Country: HK (occurrence: HK)
  Receive Date: 20230419
  Receipt Date: 20230428
  Transmission Date: 20230721
  Serious: Yes (Hospitalization)
  Sender: FDA-Public Use
  Company Number: HK-002147023-NVSC2023HK087123

PATIENT
  Age: 67 Year
  Sex: Male
  Weight: 74.2 kg

DRUGS (19)
  1. BEVACIZUMAB [Suspect]
     Active Substance: BEVACIZUMAB
     Indication: Colorectal cancer metastatic
     Dosage: 370 MG
     Route: 042
     Dates: start: 20221228
  2. NISEVOKITUG [Suspect]
     Active Substance: NISEVOKITUG
     Indication: Colorectal cancer metastatic
     Dosage: 2100 MG
     Route: 042
     Dates: start: 20221228
  3. FLUOROURACIL [Suspect]
     Active Substance: FLUOROURACIL
     Indication: Colorectal cancer metastatic
     Dosage: 748 MG
     Route: 042
     Dates: start: 20221229
  4. FLUOROURACIL [Suspect]
     Active Substance: FLUOROURACIL
     Dosage: 4488 MG
     Route: 042
     Dates: start: 20221229
  5. IRINOTECAN [Suspect]
     Active Substance: IRINOTECAN
     Indication: Colorectal cancer metastatic
     Dosage: 337 MG
     Route: 042
     Dates: start: 20221229
  6. ENTECAVIR [Concomitant]
     Active Substance: ENTECAVIR
     Indication: Hepatitis B core antibody positive
     Dosage: UNK
     Route: 065
     Dates: start: 20221222
  7. AKYNZEO [Concomitant]
     Indication: Premedication
     Dosage: UNK
     Route: 065
     Dates: start: 20221229
  8. ATROPINE [Concomitant]
     Active Substance: ATROPINE
     Indication: Premedication
     Dosage: UNK
     Route: 065
     Dates: start: 20221229
  9. METOCLOPRAMIDE [Concomitant]
     Active Substance: METOCLOPRAMIDE
     Indication: Premedication
     Dosage: UNK
     Route: 065
     Dates: start: 20221229
  10. METOCLOPRAMIDE [Concomitant]
     Active Substance: METOCLOPRAMIDE
     Indication: General physical condition
  11. METOCLOPRAMIDE [Concomitant]
     Active Substance: METOCLOPRAMIDE
     Indication: Nausea
  12. GRANISETRON [Concomitant]
     Active Substance: GRANISETRON
     Indication: Nausea
     Dosage: UNK
     Route: 065
     Dates: start: 20221231
  13. AMLODIPINE [Concomitant]
     Active Substance: AMLODIPINE BESYLATE
     Indication: Hypertension
     Dosage: UNK
     Route: 065
     Dates: start: 20230129
  14. HEPARINOID [Concomitant]
     Indication: General physical condition
     Dosage: UNK
     Route: 065
     Dates: start: 20230207
  15. AQUEOUS CREAM [Concomitant]
     Indication: General physical condition
     Dosage: UNK
     Route: 065
     Dates: start: 20230210
  16. CALAMINE [Concomitant]
     Active Substance: CALAMINE\FERRIC OXIDE RED\ZINC OXIDE
     Indication: General physical condition
     Dosage: UNK
     Route: 065
     Dates: start: 20230210
  17. EMULSIFYING OINTMENT [Concomitant]
     Indication: General physical condition
     Dosage: UNK
     Route: 065
     Dates: start: 20230210
  18. AUGMENTIN [Concomitant]
     Active Substance: AMOXICILLIN\CLAVULANATE POTASSIUM
     Indication: Urinary tract infection
     Dosage: UNK
     Route: 065
     Dates: start: 20230412, end: 20230420
  19. DEXTROSE\SODIUM CHLORIDE [Concomitant]
     Active Substance: DEXTROSE\SODIUM CHLORIDE
     Indication: General physical condition
     Dosage: DEXTROSE 2.5 PERCENT;NACL 0.45 PERCENT
     Route: 065
     Dates: start: 20230414, end: 20230418

REACTIONS (1)
  - Pulmonary embolism [Recovering/Resolving]

NARRATIVE: CASE EVENT DATE: 20230414
